FAERS Safety Report 4398990-9 (Version None)
Quarter: 2004Q3

REPORT INFORMATION
  Report Type: 
  Country: None (occurrence: None)
  Receive Date: 20040712
  Receipt Date: 20040629
  Transmission Date: 20050211
  Serious: Yes (Other)
  Sender: FDA-Public Use
  Company Number: HQWYE835201JUL04

PATIENT
  Age: 29 Year
  Sex: Male

DRUGS (1)
  1. WYMOX [Suspect]
     Indication: SINUSITIS

REACTIONS (6)
  - ANGIONEUROTIC OEDEMA [None]
  - BLOOD URINE PRESENT [None]
  - BURNING SENSATION [None]
  - PROTEIN URINE PRESENT [None]
  - SERUM SICKNESS [None]
  - SWELLING [None]
